FAERS Safety Report 9408081 (Version 1)
Quarter: 2013Q3

REPORT INFORMATION
  Report Type: Spontaneous
  Country: FR (occurrence: FR)
  Receive Date: 20130716
  Receipt Date: 20130716
  Transmission Date: 20140515
  Serious: Yes (Hospitalization)
  Sender: FDA-Public Use
  Company Number: 2013000158

PATIENT
  Age: 83 Year
  Sex: Female

DRUGS (10)
  1. ACEON [Suspect]
     Indication: PRODUCT USED FOR UNKNOWN INDICATION
     Route: 048
     Dates: end: 20130414
  2. BACTRIM [Suspect]
     Indication: PRODUCT USED FOR UNKNOWN INDICATION
     Route: 048
     Dates: start: 20130409, end: 20130414
  3. BURINEX [Suspect]
     Indication: PRODUCT USED FOR UNKNOWN INDICATION
     Route: 048
  4. LYRICA (PREGABALIN) [Concomitant]
  5. PLAVIX (CLOPIDOGREL SULFATE) [Concomitant]
  6. CORDARONE (AMIODARONE HYDROCHLORIDE)/ORAL/TABLET/200 MILLIGRAMS(S) [Concomitant]
  7. NEBILOX (NEBIVOLOL HYDROCHLORIDE) [Concomitant]
  8. AMLOR (AMLODIPINE BESILATE) [Concomitant]
  9. METFORMINE (METFORMIN HYDROCHLORIDE) [Concomitant]
  10. NOVORAPID (INSULIN ASPART) [Concomitant]

REACTIONS (11)
  - Sinus arrest [None]
  - Dyspnoea [None]
  - Condition aggravated [None]
  - Cardiac failure [None]
  - Atrioventricular block [None]
  - Altered state of consciousness [None]
  - Bradycardia [None]
  - Lactic acidosis [None]
  - Urinary tract infection [None]
  - Renal failure acute [None]
  - Hyperkalaemia [None]
